FAERS Safety Report 9220768 (Version 1)
Quarter: 2013Q2

REPORT INFORMATION
  Report Type: Spontaneous
  Country: US (occurrence: US)
  Receive Date: 20130409
  Receipt Date: 20130409
  Transmission Date: 20140414
  Serious: No
  Sender: FDA-Public Use
  Company Number: US-PFIZER INC-2013111992

PATIENT
  Age: 62 Year
  Sex: Female
  Weight: 58.05 kg

DRUGS (2)
  1. LIPITOR [Suspect]
     Indication: BLOOD CHOLESTEROL INCREASED
     Dosage: 40 MG, 1X/DAY
     Route: 048
  2. BONIVA [Concomitant]
     Dosage: UNK, MONTHLY

REACTIONS (3)
  - Expired drug administered [Unknown]
  - Heart rate increased [Unknown]
  - Malaise [Unknown]
